FAERS Safety Report 12008182 (Version 1)
Quarter: 2016Q1

REPORT INFORMATION
  Report Type: Spontaneous
  Country: US (occurrence: None)
  Receive Date: 20160203
  Receipt Date: 20160203
  Transmission Date: 20160526
  Serious: Yes (Hospitalization)
  Sender: FDA-Public Use
  Company Number: None

PATIENT
  Age: 59 Year
  Sex: Female
  Weight: 56.1 kg

DRUGS (1)
  1. ANASTROZOLE. [Suspect]
     Active Substance: ANASTROZOLE
     Dates: end: 20140712

REACTIONS (8)
  - Aortic arteriosclerosis [None]
  - Dizziness [None]
  - Nausea [None]
  - Decreased appetite [None]
  - Cough [None]
  - Chest pain [None]
  - Muscle tightness [None]
  - Cold sweat [None]

NARRATIVE: CASE EVENT DATE: 20140716
